FAERS Safety Report 16195973 (Version 3)
Quarter: 2019Q2

REPORT INFORMATION
  Report Type: Report from Study
  Country: None (occurrence: IL)
  Receive Date: 20190415
  Receipt Date: 20190607
  Transmission Date: 20190711
  Serious: Yes (Hospitalization, Other)
  Sender: FDA-Public Use
  Company Number: IL-ABBVIE-19S-082-2735587-00

PATIENT
  Sex: Male

DRUGS (2)
  1. DUODOPA [Suspect]
     Active Substance: CARBIDOPA\LEVODOPA
     Dosage: CURRENT: MD 13ML, CD 3.5ML/HOUR, ED 2ML
     Route: 050
     Dates: start: 2019
  2. DUODOPA [Suspect]
     Active Substance: CARBIDOPA\LEVODOPA
     Indication: PARKINSON^S DISEASE
     Dosage: CURRENT: MD 10ML, CD 3.5ML/HOUR, ED 2ML
     Route: 050
     Dates: start: 201903, end: 2019

REACTIONS (7)
  - Rib fracture [Unknown]
  - Pain [Not Recovered/Not Resolved]
  - Dizziness [Unknown]
  - Head injury [Unknown]
  - Contusion [Unknown]
  - Fall [Unknown]
  - Renal cyst [Unknown]
